FAERS Safety Report 5002091-6 (Version None)
Quarter: 2006Q2

REPORT INFORMATION
  Report Type: 
  Country: None (occurrence: None)
  Receive Date: 20060515
  Receipt Date: 20060505
  Transmission Date: 20061013
  Serious: Yes (Other)
  Sender: FDA-Public Use
  Company Number: CH-ROCHE-447077

PATIENT
  Age: 20 Year
  Sex: Female

DRUGS (1)
  1. ROACCUTAN [Suspect]
     Indication: ACNE
     Route: 048
     Dates: start: 20050915, end: 20060225

REACTIONS (2)
  - NO ADVERSE EFFECT [None]
  - PREGNANCY [None]
